FAERS Safety Report 20021841 (Version 2)
Quarter: 2021Q4

REPORT INFORMATION
  Report Type: Spontaneous
  Country: IL (occurrence: IL)
  Receive Date: 20211101
  Receipt Date: 20211129
  Transmission Date: 20220303
  Serious: Yes (Hospitalization, Other)
  Sender: FDA-Public Use
  Company Number: IL-AMGEN-ISRSP2021169157

PATIENT
  Age: 64 Year
  Sex: Female
  Weight: 61 kg

DRUGS (2)
  1. EVENITY [Suspect]
     Active Substance: ROMOSOZUMAB-AQQG
     Indication: Osteoporosis postmenopausal
     Dosage: 210 MILLIGRAM, QMO
     Route: 058
     Dates: start: 202106
  2. EXFORGE [Concomitant]
     Active Substance: AMLODIPINE BESYLATE\VALSARTAN
     Indication: Hypertension

REACTIONS (3)
  - Atrial fibrillation [Recovered/Resolved]
  - Atrial flutter [Recovered/Resolved]
  - Left atrial enlargement [Unknown]

NARRATIVE: CASE EVENT DATE: 20211019
